FAERS Safety Report 20152754 (Version 2)
Quarter: 2022Q1

REPORT INFORMATION
  Report Type: Spontaneous
  Country: JP (occurrence: None)
  Receive Date: 20211206
  Receipt Date: 20220127
  Transmission Date: 20220424
  Serious: Yes (Life-Threatening)
  Sender: FDA-Public Use
  Company Number: 2021A853465

PATIENT
  Sex: Male

DRUGS (8)
  1. IMFINZI [Suspect]
     Active Substance: DURVALUMAB
     Indication: Small cell lung cancer
     Dosage: DOSE UNKNOWN
     Route: 041
  2. IMFINZI [Suspect]
     Active Substance: DURVALUMAB
     Indication: Small cell lung cancer
     Dosage: DOSE UNKNOWN
     Route: 041
  3. CISPLATIN [Suspect]
     Active Substance: CISPLATIN
     Indication: Small cell lung cancer
  4. IRINOTECAN HYDROCHLORIDE [Suspect]
     Active Substance: IRINOTECAN HYDROCHLORIDE
     Indication: Small cell lung cancer
  5. CARBOPLATIN [Concomitant]
     Active Substance: CARBOPLATIN
     Indication: Small cell lung cancer
     Dosage: AUC5
     Route: 065
  6. CARBOPLATIN [Concomitant]
     Active Substance: CARBOPLATIN
     Indication: Small cell lung cancer
     Dosage: AUC4
     Route: 065
  7. ETOPOSIDE [Concomitant]
     Active Substance: ETOPOSIDE
     Indication: Small cell lung cancer
     Dosage: 100, DAY 1, DAY 2, AND DAY 3 OF EACH COURSE
     Route: 065
  8. ETOPOSIDE [Concomitant]
     Active Substance: ETOPOSIDE
     Indication: Small cell lung cancer
     Dosage: 80, DAY 1, DAY 2, AND DAY 3 OF EACH COURSE
     Route: 065

REACTIONS (1)
  - Neutrophil count decreased [Unknown]
